FAERS Safety Report 26191039 (Version 1)
Quarter: 2025Q4

REPORT INFORMATION
  Report Type: Report from Study
  Country: CA (occurrence: CA)
  Receive Date: 20251223
  Receipt Date: 20251223
  Transmission Date: 20260117
  Serious: Yes (Hospitalization, Other)
  Sender: GILEAD
  Company Number: CA-GILEAD-2025-0741769

PATIENT
  Sex: Female

DRUGS (3)
  1. BICTEGRAVIR\EMTRICITABINE\TENOFOVIR ALAFENAMIDE [Suspect]
     Active Substance: BICTEGRAVIR\EMTRICITABINE\TENOFOVIR ALAFENAMIDE
     Indication: HIV infection
     Dosage: UNK UNK, QD (200MG,25MG AND 50MG)
     Route: 065
  2. DARUNAVIR [Concomitant]
     Active Substance: DARUNAVIR
     Dosage: UNKNOWN
  3. RITONAVIR [Concomitant]
     Active Substance: RITONAVIR
     Dosage: UNKNOWN

REACTIONS (3)
  - Facial paralysis [Recovering/Resolving]
  - Cerebrovascular accident [Recovering/Resolving]
  - Immune system disorder [Recovering/Resolving]
